FAERS Safety Report 7987621-4 (Version None)
Quarter: 2011Q4

REPORT INFORMATION
  Report Type: 
  Country: None (occurrence: None)
  Receive Date: 20111216
  Receipt Date: 20110103
  Transmission Date: 20120403
  Serious: No
  Sender: FDA-Public Use
  Company Number: US-BRISTOL-MYERS SQUIBB COMPANY-15211485

PATIENT
  Age: 35 Year
  Sex: Male

DRUGS (8)
  1. BENADRYL [Concomitant]
  2. PROZAC [Suspect]
     Indication: ASPERGER'S DISORDER
  3. LITHIUM CARBONATE [Suspect]
     Indication: OBSESSIVE-COMPULSIVE DISORDER
  4. LITHIUM CARBONATE [Suspect]
     Indication: ASPERGER'S DISORDER
  5. ABILIFY [Suspect]
     Indication: BIPOLAR DISORDER
     Dosage: INCREASED TO 10MG DAILY THEN REDUCED TO 7.5MG,5MG,2.5MG THEN DISCONTINUED
     Route: 048
     Dates: start: 20100303, end: 20100630
  6. PROZAC [Suspect]
     Indication: OBSESSIVE-COMPULSIVE DISORDER
  7. ATIVAN [Concomitant]
  8. ZOFRAN [Concomitant]

REACTIONS (10)
  - GRIMACING [None]
  - DYSPHAGIA [None]
  - SALIVARY HYPERSECRETION [None]
  - ENERGY INCREASED [None]
  - MUSCULOSKELETAL STIFFNESS [None]
  - RETCHING [None]
  - DECREASED APPETITE [None]
  - SEDATION [None]
  - DIZZINESS [None]
  - EYELID PTOSIS [None]
